FAERS Safety Report 20471786 (Version 6)
Quarter: 2022Q4

REPORT INFORMATION
  Report Type: Spontaneous
  Country: US (occurrence: US)
  Receive Date: 20220214
  Receipt Date: 20221121
  Transmission Date: 20230113
  Serious: Yes (Other)
  Sender: FDA-Public Use
  Company Number: US-009507513-2201USA008360

PATIENT
  Sex: Male

DRUGS (9)
  1. TICE BCG [Suspect]
     Active Substance: BACILLUS CALMETTE-GUERIN SUBSTRAIN TICE LIVE ANTIGEN
     Indication: Bladder cancer
     Dosage: ONCE A WEEK FOR 6 WEEKS
     Dates: start: 201808, end: 2018
  2. TICE BCG [Suspect]
     Active Substance: BACILLUS CALMETTE-GUERIN SUBSTRAIN TICE LIVE ANTIGEN
     Dosage: ONCE A WEEK FOR 6 WEEKS
     Dates: end: 2019
  3. KEYTRUDA [Suspect]
     Active Substance: PEMBROLIZUMAB
     Indication: Transitional cell carcinoma
     Dosage: 200 MILLIGRAMS EVERY 3 WEEKS
     Route: 042
     Dates: start: 20211028
  4. KEYTRUDA [Suspect]
     Active Substance: PEMBROLIZUMAB
     Indication: Bladder cancer
     Dosage: 200 MILLIGRAMS EVERY 3 WEEKS
     Route: 042
     Dates: start: 202112
  5. KEYTRUDA [Suspect]
     Active Substance: PEMBROLIZUMAB
     Dosage: 200 MILLIGRAMS EVERY 21 DAYS
     Route: 042
     Dates: start: 20211105
  6. GEMCITABINE [Suspect]
     Active Substance: GEMCITABINE
     Dosage: ONCE A WEEK EVERY 6 WEEKS, VIA UNSPECIFIED CATHETER AND LEFT IN HIS BLADDER FOR 1 HOUR, THEN REMOVED
     Dates: start: 2020
  7. CISPLATIN [Suspect]
     Active Substance: CISPLATIN
  8. FLOMAX [Concomitant]
     Active Substance: TAMSULOSIN HYDROCHLORIDE
     Indication: Prostatomegaly
  9. DOXYCYCLINE [Concomitant]
     Active Substance: DOXYCYCLINE
     Dosage: ONCE A WEEK EVERY 6 WEEKS
     Dates: start: 2020

REACTIONS (10)
  - Transitional cell cancer of the renal pelvis and ureter [Not Recovered/Not Resolved]
  - Neuropathy peripheral [Not Recovered/Not Resolved]
  - Ureterectomy [Not Recovered/Not Resolved]
  - Nephrectomy [Not Recovered/Not Resolved]
  - Ureteral wall thickening [Not Recovered/Not Resolved]
  - Therapy partial responder [Unknown]
  - White blood cell count decreased [Unknown]
  - Asthenia [Unknown]
  - Anaemia [Unknown]
  - Rash [Unknown]

NARRATIVE: CASE EVENT DATE: 20220101
